FAERS Safety Report 25748432 (Version 3)
Quarter: 2025Q4

REPORT INFORMATION
  Report Type: Report from Study
  Country: US (occurrence: US)
  Receive Date: 20250902
  Receipt Date: 20251003
  Transmission Date: 20260118
  Serious: No
  Sender: ACADIA PHARMACEUTICALS
  Company Number: US-ACADIA PHARMACEUTICALS INC.-ACA-2025-PIM-009618

PATIENT
  Sex: Male

DRUGS (21)
  1. NUPLAZID [Suspect]
     Active Substance: PIMAVANSERIN TARTRATE
     Indication: Parkinson^s disease psychosis
     Dosage: 34 MILLIGRAM, QD
     Route: 048
     Dates: start: 20250812
  2. ALBUTEROL SULFATE [Concomitant]
     Active Substance: ALBUTEROL SULFATE
  3. BACLOFEN [Concomitant]
     Active Substance: BACLOFEN
  4. BOTOX [Concomitant]
     Active Substance: ONABOTULINUMTOXINA
  5. SODIUM CHLORIDE [Concomitant]
     Active Substance: SODIUM CHLORIDE
  6. RYTARY [Concomitant]
     Active Substance: CARBIDOPA\LEVODOPA
     Dosage: (FOUR CAPSULES, 5 TIMES DAILY)
  7. SINEMET CR [Concomitant]
     Active Substance: CARBIDOPA\LEVODOPA
     Dosage: 25/100 CR (TWO AT BEDTIME)
  8. SINEMET [Concomitant]
     Active Substance: CARBIDOPA\LEVODOPA
     Dosage: 25/100 (ONE TABLET IN THE AM)
  9. CITALOPRAM [Concomitant]
     Active Substance: CITALOPRAM
     Dosage: 10 MG (ONCE DAILY)
  10. VITAMIN B12 [Concomitant]
     Active Substance: CYANOCOBALAMIN
  11. EDARAVONE [Concomitant]
     Active Substance: EDARAVONE
  12. DONEPEZIL HYDROCHLORIDE [Concomitant]
     Active Substance: DONEPEZIL HYDROCHLORIDE
     Dosage: 10 MG (ONE NIGHTLY)
  13. FLUDROCORTISONE [Concomitant]
     Active Substance: FLUDROCORTISONE
  14. QUETIAPINE [Concomitant]
     Active Substance: QUETIAPINE
  15. MELATONIN [Concomitant]
     Active Substance: MELATONIN
  16. MIRALAX [Concomitant]
     Active Substance: POLYETHYLENE GLYCOL 3350
  17. SENNASID [SENNOSIDE A+B] [Concomitant]
     Dosage: TAPERING OFF
  18. SENOKOT [Concomitant]
     Active Substance: SENNOSIDES
     Dosage: 2 TABS
  19. SIMETHICONE (DIMETHICONE) [Concomitant]
     Active Substance: DIMETHICONE
  20. KETOCONAZOLE;TRIAMCINOLONE [Concomitant]
     Dosage: TOPICAL
     Route: 061
  21. SEROQUEL [Concomitant]
     Active Substance: QUETIAPINE FUMARATE
     Dosage: UNK
     Dates: start: 20250924

REACTIONS (1)
  - Therapeutic product effect incomplete [Unknown]
